FAERS Safety Report 8244591-1 (Version None)
Quarter: 2012Q1

REPORT INFORMATION
  Report Type: 
  Country: None (occurrence: None)
  Receive Date: 20120329
  Receipt Date: 20120315
  Transmission Date: 20120608
  Serious: Yes (Other)
  Sender: FDA-Public Use
  Company Number: LB-CELGENEUS-093-20785-11090461

PATIENT
  Sex: Male

DRUGS (5)
  1. DEXAMETHASONE [Concomitant]
     Route: 065
     Dates: start: 20100601
  2. VELCADE [Concomitant]
     Route: 065
     Dates: start: 20100601
  3. THALIDOMIDE [Suspect]
     Indication: MULTIPLE MYELOMA
     Dosage: 50 MILLIGRAM
     Route: 048
     Dates: start: 20100601, end: 20110401
  4. CMP [Concomitant]
     Route: 065
     Dates: start: 20100601
  5. ZOMETA [Concomitant]
     Route: 065
     Dates: start: 20100601

REACTIONS (1)
  - OSTEONECROSIS OF JAW [None]
